FAERS Safety Report 15941643 (Version 1)
Quarter: 2019Q1

REPORT INFORMATION
  Report Type: Spontaneous
  Country: US (occurrence: US)
  Receive Date: 20190209
  Receipt Date: 20190209
  Transmission Date: 20190417
  Serious: Yes (Other)
  Sender: FDA-Public Use
  Company Number: None

PATIENT
  Age: 53 Year
  Sex: Male
  Weight: 144.9 kg

DRUGS (6)
  1. TROKENDI [Concomitant]
     Active Substance: TOPIRAMATE
  2. TORSEMIDE. [Concomitant]
     Active Substance: TORSEMIDE
  3. EMGALITY [Suspect]
     Active Substance: GALCANEZUMAB-GNLM
     Indication: MIGRAINE
     Dosage: ?          QUANTITY:1 INJECTION(S);OTHER FREQUENCY:A MONTH;?
     Route: 030
     Dates: start: 20181227, end: 20190131
  4. CARTIZEM [Concomitant]
  5. POTASSIUM [Concomitant]
     Active Substance: POTASSIUM
  6. SPIRALACTONE [Concomitant]

REACTIONS (5)
  - Constipation [None]
  - Injection site swelling [None]
  - Fluid retention [None]
  - Weight increased [None]
  - Increased appetite [None]

NARRATIVE: CASE EVENT DATE: 20190108
